FAERS Safety Report 6956952-9 (Version None)
Quarter: 2010Q3

REPORT INFORMATION
  Report Type: 
  Country: None (occurrence: None)
  Receive Date: 20100827
  Receipt Date: 20100827
  Transmission Date: 20110219
  Serious: Yes (Hospitalization, Other)
  Sender: FDA-Public Use
  Company Number: None

PATIENT
  Age: 68 Year
  Sex: Female
  Weight: 60.782 kg

DRUGS (1)
  1. SERTRALINE HYDROCHLORIDE [Suspect]
     Indication: DEPRESSION
     Dosage: TAKE 1 TABLET AT BEDTIME
     Dates: start: 20090622, end: 20100406

REACTIONS (6)
  - DIARRHOEA [None]
  - FATIGUE [None]
  - HEPATIC ENZYME INCREASED [None]
  - PALPITATIONS [None]
  - PRODUCT SUBSTITUTION ISSUE [None]
  - WEIGHT DECREASED [None]
